FAERS Safety Report 22323691 (Version 1)
Quarter: 2023Q2

REPORT INFORMATION
  Report Type: Spontaneous
  Country: IN (occurrence: None)
  Receive Date: 20230516
  Receipt Date: 20230516
  Transmission Date: 20230721
  Serious: Yes (Other)
  Sender: FDA-Public Use
  Company Number: IN-ROCHE-3348064

PATIENT
  Sex: Male

DRUGS (12)
  1. RITUXIMAB [Suspect]
     Active Substance: RITUXIMAB
     Indication: Diffuse large B-cell lymphoma
     Dosage: 1ST LINE SYSTEMIC TREATMENT, R-CHOP
     Route: 065
     Dates: start: 20220803, end: 20221215
  2. RITUXIMAB [Suspect]
     Active Substance: RITUXIMAB
     Dosage: 2ND LINE SYSTEMIC TREATMENT, R-ICE
     Route: 065
     Dates: start: 20221220, end: 20230218
  3. RITUXIMAB [Suspect]
     Active Substance: RITUXIMAB
     Dosage: 3RD LINE SYSTEMIC TREATMENT, RITUXIMAB + BENDAMUSTINE + BORTEZOMIB
     Route: 065
     Dates: start: 20230301, end: 20230420
  4. CYCLOPHOSPHAMIDE [Suspect]
     Active Substance: CYCLOPHOSPHAMIDE
     Indication: Diffuse large B-cell lymphoma
     Dosage: 1ST LINE SYSTEMIC TREATMENT, R-CHOP
     Route: 065
     Dates: start: 20220803, end: 20221215
  5. EPIRUBICIN [Suspect]
     Active Substance: EPIRUBICIN
     Indication: Diffuse large B-cell lymphoma
     Dosage: 1ST LINE SYSTEMIC TREATMENT, R-CHOP
     Route: 065
     Dates: start: 20220803, end: 20221215
  6. ONCOVIN [Suspect]
     Active Substance: VINCRISTINE SULFATE
     Indication: Diffuse large B-cell lymphoma
     Dosage: 1ST LINE SYSTEMIC TREATMENT, R-CHOP
     Route: 065
     Dates: start: 20220803, end: 20221215
  7. PREDNISONE [Suspect]
     Active Substance: PREDNISONE
     Indication: Diffuse large B-cell lymphoma
     Dosage: 1ST LINE SYSTEMIC TREATMENT, R-CHOP
     Route: 065
     Dates: start: 20220803, end: 20221215
  8. IFOSFAMIDE [Suspect]
     Active Substance: IFOSFAMIDE
     Indication: Diffuse large B-cell lymphoma
     Dosage: 2ND LINE SYSTEMIC TREATMENT, R-ICE
     Route: 065
     Dates: start: 20221220, end: 20230218
  9. CARBOPLATIN [Suspect]
     Active Substance: CARBOPLATIN
     Indication: Diffuse large B-cell lymphoma
     Dosage: 2ND LINE SYSTEMIC TREATMENT, R-ICE
     Route: 065
     Dates: start: 20221220, end: 20230218
  10. ETOPOSIDE [Suspect]
     Active Substance: ETOPOSIDE
     Indication: Diffuse large B-cell lymphoma
     Dosage: 2ND LINE SYSTEMIC TREATMENT, R-ICE
     Route: 065
     Dates: start: 20221220, end: 20230218
  11. BENDAMUSTINE [Suspect]
     Active Substance: BENDAMUSTINE
     Indication: Diffuse large B-cell lymphoma
     Dosage: 3RD LINE SYSTEMIC TREATMENT, RITUXIMAB + BENDAMUSTINE + BORTEZOMIB
     Route: 065
     Dates: start: 20230301, end: 20230420
  12. BORTEZOMIB [Suspect]
     Active Substance: BORTEZOMIB
     Indication: Diffuse large B-cell lymphoma
     Dosage: 3RD LINE SYSTEMIC TREATMENT, RITUXIMAB + BENDAMUSTINE + BORTEZOMIB
     Route: 065
     Dates: start: 20230301, end: 20230420

REACTIONS (1)
  - Disease progression [Unknown]
